FAERS Safety Report 21983809 (Version 1)
Quarter: 2023Q1

REPORT INFORMATION
  Report Type: Spontaneous
  Country: IT (occurrence: IT)
  Receive Date: 20230213
  Receipt Date: 20230213
  Transmission Date: 20230417
  Serious: Yes (Other)
  Sender: FDA-Public Use
  Company Number: None

PATIENT
  Age: 36 Year
  Sex: Female

DRUGS (2)
  1. GILENYA [Suspect]
     Active Substance: FINGOLIMOD HYDROCHLORIDE
     Indication: Relapsing multiple sclerosis
     Dosage: 0.5 MG, (1 CPR /DIE)
     Route: 048
     Dates: start: 20161101
  2. CITALOPRAM [Concomitant]
     Active Substance: CITALOPRAM HYDROBROMIDE
     Indication: Perinatal depression
     Dosage: 20 MG, QD
     Route: 048
     Dates: start: 20190901

REACTIONS (1)
  - Thyroid mass [Recovering/Resolving]

NARRATIVE: CASE EVENT DATE: 20220414
